FAERS Safety Report 6032573-X (Version None)
Quarter: 2009Q1

REPORT INFORMATION
  Report Type: 
  Country: None (occurrence: None)
  Receive Date: 20090109
  Receipt Date: 20090102
  Transmission Date: 20090719
  Serious: Yes (Other)
  Sender: FDA-Public Use
  Company Number: BR-ROCHE-606096

PATIENT
  Age: 59 Year
  Sex: Female
  Weight: 73 kg

DRUGS (5)
  1. BONIVA [Suspect]
     Indication: OSTEOPOROSIS
     Dosage: OTHER INDICATION: KNEE DISORDER NOS
     Route: 048
     Dates: start: 20080601
  2. METFORMIN HCL [Suspect]
     Route: 048
     Dates: end: 20080101
  3. GLIFAGE [Concomitant]
     Route: 048
     Dates: start: 20070101
  4. ARADOIS [Concomitant]
     Indication: HYPERTENSION
     Route: 048
     Dates: start: 20030101
  5. AMLODIPINE [Concomitant]
     Indication: HYPERTENSION
     Route: 048
     Dates: start: 20030101

REACTIONS (5)
  - CAROTID ARTERY STENOSIS [None]
  - DIABETES MELLITUS [None]
  - DIARRHOEA [None]
  - JOINT EFFUSION [None]
  - PAIN IN EXTREMITY [None]
